FAERS Safety Report 21479867 (Version 2)
Quarter: 2023Q1

REPORT INFORMATION
  Report Type: Report from Study
  Country: US (occurrence: US)
  Receive Date: 20221019
  Receipt Date: 20230124
  Transmission Date: 20230417
  Serious: Yes (Hospitalization, Other)
  Sender: FDA-Public Use
  Company Number: US-ABBVIE-4166395

PATIENT
  Sex: Male

DRUGS (5)
  1. IMBRUVICA [Suspect]
     Active Substance: IBRUTINIB
     Indication: Waldenstrom^s macroglobulinaemia
     Dosage: 280 MILLIGRAM
     Route: 048
     Dates: start: 20190725, end: 20190819
  2. IMBRUVICA [Suspect]
     Active Substance: IBRUTINIB
     Indication: Waldenstrom^s macroglobulinaemia
     Dosage: 420 MILLIGRAM
     Route: 048
     Dates: end: 20190924
  3. IMBRUVICA [Suspect]
     Active Substance: IBRUTINIB
     Indication: Waldenstrom^s macroglobulinaemia
     Dosage: 280 MILLIGRAM
     Route: 048
     Dates: end: 20200207
  4. IMBRUVICA [Suspect]
     Active Substance: IBRUTINIB
     Indication: Waldenstrom^s macroglobulinaemia
     Dosage: 420 MILLIGRAM
     Route: 048
     Dates: end: 20201121
  5. IMBRUVICA [Suspect]
     Active Substance: IBRUTINIB
     Indication: Waldenstrom^s macroglobulinaemia
     Dosage: 280 MILLIGRAM
     Route: 048

REACTIONS (7)
  - Atrial fibrillation [Unknown]
  - Oedema peripheral [Recovered/Resolved]
  - Pulmonary oedema [Unknown]
  - Petechiae [Recovered/Resolved]
  - Therapeutic product effect incomplete [Unknown]
  - Blood immunoglobulin M decreased [Unknown]
  - Immunoglobulins decreased [Unknown]
